FAERS Safety Report 6671462-4 (Version None)
Quarter: 2010Q2

REPORT INFORMATION
  Report Type: 
  Country: None (occurrence: None)
  Receive Date: 20100406
  Receipt Date: 20100406
  Transmission Date: 20101027
  Serious: Yes (Other)
  Sender: FDA-Public Use
  Company Number: None

PATIENT
  Age: 66 Year
  Sex: Female
  Weight: 65.7716 kg

DRUGS (2)
  1. DIOVAN [Suspect]
     Indication: HYPERTENSION
     Dosage: 40 MG. 1-A DAY 40 MG. 80 MG.
     Dates: start: 20091020, end: 20100104
  2. DIOVAN [Suspect]
     Indication: HYPERTENSION
     Dosage: 40 MG. 1-A DAY 40 MG. 80 MG.
     Dates: start: 20100104, end: 20100115

REACTIONS (1)
  - ALOPECIA [None]
